FAERS Safety Report 16625370 (Version 1)
Quarter: 2019Q3

REPORT INFORMATION
  Report Type: Spontaneous
  Country: US (occurrence: US)
  Receive Date: 20190724
  Receipt Date: 20190724
  Transmission Date: 20191004
  Serious: Yes (Hospitalization)
  Sender: FDA-Public Use
  Company Number: None

PATIENT
  Sex: Female

DRUGS (13)
  1. CYMBALTA [Concomitant]
     Active Substance: DULOXETINE HYDROCHLORIDE
     Dates: start: 20150316
  2. NALTREXONE [Concomitant]
     Active Substance: NALTREXONE
     Dates: start: 20150316
  3. VITAMIN B12 [Concomitant]
     Active Substance: CYANOCOBALAMIN
     Dates: start: 20190723
  4. CALCIFEROL [Concomitant]
     Dates: start: 20150316
  5. LOSARTAN POT [Concomitant]
     Active Substance: LOSARTAN POTASSIUM
     Dates: start: 20150316
  6. HUMIRA [Suspect]
     Active Substance: ADALIMUMAB
     Indication: RHEUMATOID ARTHRITIS
     Dosage: ?          OTHER FREQUENCY:EVERY 2 WEEKS;?
     Route: 058
     Dates: start: 20171107
  7. BUPROPION. [Concomitant]
     Active Substance: BUPROPION
     Dates: start: 20150316
  8. NORVASC [Concomitant]
     Active Substance: AMLODIPINE BESYLATE
     Dates: start: 20150316
  9. VITAMIN D [Concomitant]
     Active Substance: VITAMIN D NOS
     Dates: start: 20190723
  10. BUSPIRONE [Concomitant]
     Active Substance: BUSPIRONE HYDROCHLORIDE
     Dates: start: 20181023
  11. TAMOXIFEN [Concomitant]
     Active Substance: TAMOXIFEN
     Dates: start: 20190614
  12. FOLIC ACID. [Concomitant]
     Active Substance: FOLIC ACID
     Dates: start: 20150316
  13. METHOTREXATE. [Concomitant]
     Active Substance: METHOTREXATE
     Dates: start: 20150316

REACTIONS (4)
  - Breast swelling [None]
  - Breast pain [None]
  - Erythema [None]
  - Injection site pain [None]
